FAERS Safety Report 11313460 (Version 2)
Quarter: 2015Q4

REPORT INFORMATION
  Report Type: Report from Study
  Country: VE (occurrence: VE)
  Receive Date: 20150727
  Receipt Date: 20151009
  Transmission Date: 20160304
  Serious: Yes (Other)
  Sender: FDA-Public Use
  Company Number: VE-ABBVIE-15P-178-1432584-00

PATIENT
  Age: 33 Year
  Sex: Female
  Weight: 50 kg

DRUGS (2)
  1. PREDNISONE. [Concomitant]
     Active Substance: PREDNISONE
     Indication: PRODUCT USED FOR UNKNOWN INDICATION
  2. HUMIRA [Suspect]
     Active Substance: ADALIMUMAB
     Indication: RHEUMATOID ARTHRITIS
     Route: 058
     Dates: start: 20140312, end: 201505

REACTIONS (4)
  - High risk pregnancy [Recovering/Resolving]
  - Exposure during pregnancy [Unknown]
  - Urinary tract infection [Recovering/Resolving]
  - Placenta praevia [Recovering/Resolving]

NARRATIVE: CASE EVENT DATE: 201504
